FAERS Safety Report 7432782-9 (Version None)
Quarter: 2011Q2

REPORT INFORMATION
  Report Type: 
  Country: None (occurrence: None)
  Receive Date: 20110422
  Receipt Date: 20110414
  Transmission Date: 20111010
  Serious: Yes (Hospitalization)
  Sender: FDA-Public Use
  Company Number: B0714039A

PATIENT
  Sex: Male
  Weight: 79 kg

DRUGS (10)
  1. ZOVIRAX [Concomitant]
     Dosage: 1000MG PER DAY
     Route: 048
     Dates: end: 20061002
  2. KYTRIL [Concomitant]
     Dosage: 3MG PER DAY
     Route: 042
     Dates: end: 20060905
  3. FLUDARA [Suspect]
     Indication: ALLOGENIC BONE MARROW TRANSPLANTATION THERAPY
     Dosage: 25MG PER DAY
     Route: 042
     Dates: start: 20060829, end: 20060902
  4. URSO 250 [Concomitant]
     Dosage: 600MG PER DAY
     Route: 048
  5. ZANTAC [Concomitant]
     Dosage: 150MG PER DAY
     Route: 048
     Dates: end: 20061110
  6. FUNGUARD [Concomitant]
     Dosage: 100MG PER DAY
     Route: 042
     Dates: end: 20061024
  7. CYCLOSPORINE [Concomitant]
     Indication: IMMUNOSUPPRESSION
     Dosage: 160MG PER DAY
     Route: 065
     Dates: start: 20061107
  8. ALKERAN [Suspect]
     Indication: ALLOGENIC BONE MARROW TRANSPLANTATION THERAPY
     Dosage: 70MGM2 PER DAY
     Route: 042
     Dates: start: 20060903, end: 20060904
  9. TACROLIMUS HYDRATE [Concomitant]
     Indication: IMMUNOSUPPRESSION
     Dosage: 2MG PER DAY
     Route: 065
     Dates: start: 20060905, end: 20061106
  10. CRAVIT [Concomitant]
     Dosage: 300MG PER DAY
     Route: 048
     Dates: end: 20061029

REACTIONS (2)
  - FEBRILE NEUTROPENIA [None]
  - HEPATIC FUNCTION ABNORMAL [None]
